FAERS Safety Report 9353216 (Version 1)
Quarter: 2013Q2

REPORT INFORMATION
  Report Type: Spontaneous
  Country: US (occurrence: US)
  Receive Date: 20130618
  Receipt Date: 20130618
  Transmission Date: 20140414
  Serious: No
  Sender: FDA-Public Use
  Company Number: US-PFIZER INC-2013179047

PATIENT
  Sex: 0

DRUGS (2)
  1. XALKORI [Suspect]
     Dosage: 250 MG, 2X/DAY
  2. XALKORI [Suspect]
     Dosage: 200 MG, 2X/DAY

REACTIONS (2)
  - Oedema [Unknown]
  - Alanine aminotransferase increased [Unknown]
